FAERS Safety Report 14962135 (Version 11)
Quarter: 2018Q3

REPORT INFORMATION
  Report Type: Report from Study
  Country: US (occurrence: US)
  Receive Date: 20180601
  Receipt Date: 20180828
  Transmission Date: 20181010
  Serious: Yes (Hospitalization)
  Sender: FDA-Public Use
  Company Number: US-BRISTOL-MYERS SQUIBB COMPANY-BMS-2018-050106

PATIENT
  Age: 45 Year
  Sex: Female
  Weight: 97.8 kg

DRUGS (56)
  1. OXYCODONE [Concomitant]
     Active Substance: OXYCODONE
     Indication: ABDOMINAL PAIN
     Route: 065
  2. NORMAL SALINE [Concomitant]
     Active Substance: SODIUM CHLORIDE
     Indication: BLOOD CREATININE INCREASED
     Dosage: 500 ML, UNK
     Route: 042
     Dates: start: 20180515
  3. NORMAL SALINE [Concomitant]
     Active Substance: SODIUM CHLORIDE
     Indication: PROPHYLAXIS
     Route: 065
  4. BENADRYL [Concomitant]
     Active Substance: DIPHENHYDRAMINE HYDROCHLORIDE
     Indication: INFUSION RELATED REACTION
     Dosage: 50 MG, UNK
     Route: 042
     Dates: start: 20180529
  5. MORPHINE [Concomitant]
     Active Substance: MORPHINE
     Indication: ABDOMINAL PAIN
     Route: 065
  6. NIVOLUMAB [Suspect]
     Active Substance: NIVOLUMAB
     Indication: LUNG ADENOCARCINOMA
     Dosage: 240 MG, Q2WK
     Route: 042
     Dates: start: 20180515
  7. MS CONTIN [Concomitant]
     Active Substance: MORPHINE SULFATE
     Indication: ABDOMINAL PAIN
     Dosage: 30 MG, TID
     Route: 048
     Dates: start: 20180425
  8. MS CONTIN [Concomitant]
     Active Substance: MORPHINE SULFATE
     Indication: PRODUCT USED FOR UNKNOWN INDICATION
     Dosage: 120 MG, BID
     Route: 065
     Dates: start: 20180601
  9. ARMOUR THYROID [Concomitant]
     Active Substance: THYROID, PORCINE
     Indication: HYPOTHYROIDISM
     Dosage: 60 MG, QD
     Route: 048
     Dates: start: 20171231
  10. MOTRIN [Concomitant]
     Active Substance: IBUPROFEN
     Indication: ABDOMINAL PAIN
     Dosage: 800 MG, Q8H
     Route: 048
     Dates: start: 20171120
  11. FISH OIL [Concomitant]
     Active Substance: FISH OIL
     Indication: PRODUCT USED FOR UNKNOWN INDICATION
     Dosage: 2 DOSES
     Route: 048
  12. ZOFRAN [Concomitant]
     Active Substance: ONDANSETRON HYDROCHLORIDE
     Indication: NAUSEA
     Dosage: 4 MG, 1 IN 8 HOUR
     Route: 048
     Dates: start: 20171221
  13. NEURONTIN [Concomitant]
     Active Substance: GABAPENTIN
     Indication: PAIN
     Route: 065
  14. AUGMENTIN [Concomitant]
     Active Substance: AMOXICILLIN\CLAVULANATE POTASSIUM
     Indication: PROPHYLAXIS
     Dosage: UNK UNK, BID
     Route: 065
     Dates: start: 20180601
  15. OXYGEN. [Concomitant]
     Active Substance: OXYGEN
     Indication: HYPOXIA
     Dosage: UNK
     Route: 055
     Dates: start: 20180529
  16. ROXICODONE [Concomitant]
     Active Substance: OXYCODONE HYDROCHLORIDE
     Indication: ABDOMINAL PAIN
     Dosage: 15 MG, Q6H
     Route: 048
     Dates: start: 20170507
  17. ZOFRAN [Concomitant]
     Active Substance: ONDANSETRON HYDROCHLORIDE
     Indication: VOMITING
     Dosage: 4 MG, UNK
     Route: 048
     Dates: start: 20180515
  18. COMPAZINE                          /00013302/ [Concomitant]
     Active Substance: PROCHLORPERAZINE EDISYLATE
     Indication: NAUSEA
     Dosage: 10 MG, UNK
     Route: 048
     Dates: start: 20180515
  19. SENOKOT [Concomitant]
     Active Substance: SENNOSIDES
     Indication: CONSTIPATION
     Dosage: 17.2 MG, BID
     Route: 048
     Dates: start: 20180507
  20. COLACE [Concomitant]
     Active Substance: DOCUSATE SODIUM
     Indication: CONSTIPATION
     Dosage: 100 MG, BID
     Route: 048
     Dates: start: 20180507
  21. MS CONTIN [Concomitant]
     Active Substance: MORPHINE SULFATE
     Indication: CHEST PAIN
     Dosage: 60 MG, TID
     Route: 065
     Dates: start: 20180507
  22. MS CONTIN [Concomitant]
     Active Substance: MORPHINE SULFATE
     Indication: NON-CARDIAC CHEST PAIN
     Dosage: 2 MG, UNK
     Route: 065
     Dates: start: 20180529, end: 20180529
  23. MOTRIN [Concomitant]
     Active Substance: IBUPROFEN
     Indication: NON-CARDIAC CHEST PAIN
     Dosage: 400 MG, UNK
     Route: 048
     Dates: start: 20180515
  24. NEURONTIN [Concomitant]
     Active Substance: GABAPENTIN
     Indication: ABDOMINAL PAIN
     Dosage: 300 MG, QD
     Route: 065
     Dates: start: 20180601
  25. DECADRON [Concomitant]
     Active Substance: DEXAMETHASONE
     Indication: MUSCULOSKELETAL PAIN
     Route: 065
  26. ROXICODONE [Concomitant]
     Active Substance: OXYCODONE HYDROCHLORIDE
     Indication: CHEST PAIN
     Route: 065
  27. ESTRACE [Concomitant]
     Active Substance: ESTRADIOL
     Indication: OOPHORECTOMY
     Dosage: 3 MG, QD
     Route: 048
     Dates: start: 2017
  28. ADVIL (MEFENAMIC ACID) [Concomitant]
     Active Substance: MEFENAMIC ACID
     Indication: NON-CARDIAC CHEST PAIN
     Dosage: 400 MG, UNK
     Route: 048
     Dates: start: 20180515
  29. ADVIL (MEFENAMIC ACID) [Concomitant]
     Active Substance: MEFENAMIC ACID
     Indication: PAIN
     Route: 065
  30. MOTRIN [Concomitant]
     Active Substance: IBUPROFEN
     Indication: PAIN
     Route: 065
  31. SODIUM CHLORIDE. [Concomitant]
     Active Substance: SODIUM CHLORIDE
     Indication: PREMEDICATION
     Dosage: 500 ML, TOTAL
     Route: 042
     Dates: start: 20180515
  32. DECADRON [Concomitant]
     Active Substance: DEXAMETHASONE
     Indication: NON-CARDIAC CHEST PAIN
     Route: 065
  33. PANTOPRAZOLE [Concomitant]
     Active Substance: PANTOPRAZOLE
     Indication: DYSPEPSIA
     Dosage: 40 MG, QD
     Route: 048
     Dates: start: 20180523
  34. JNJ?64041757 [Suspect]
     Active Substance: PEMLIMOGENE MEROLISBAC
     Indication: LUNG ADENOCARCINOMA
     Dosage: 1 ML, Q4WK
     Route: 042
     Dates: start: 20180515
  35. ROBITUSSIN A C [Concomitant]
     Active Substance: CODEINE\GUAIFENESIN\PHENIRAMINE MALEATE
     Indication: COUGH
     Dosage: 5 ML, Q6H
     Route: 048
     Dates: start: 20180201
  36. FISH OIL [Concomitant]
     Active Substance: FISH OIL
     Indication: PROPHYLAXIS
     Dosage: 1 DF, UNK
     Route: 048
     Dates: start: 20121022
  37. ONDANSETRON [Concomitant]
     Active Substance: ONDANSETRON
     Indication: NON-CARDIAC CHEST PAIN
     Dosage: 15 MG, Q8H
     Route: 048
     Dates: start: 20180425
  38. ONDANSETRON [Concomitant]
     Active Substance: ONDANSETRON
     Indication: ABDOMINAL PAIN
     Dosage: UNK
     Route: 065
     Dates: start: 20171221
  39. CLINDAMYCIN. [Concomitant]
     Active Substance: CLINDAMYCIN
     Indication: ERYTHEMA
     Dosage: 300 MG, TID
     Route: 065
     Dates: start: 20180529
  40. OXYCODONE [Concomitant]
     Active Substance: OXYCODONE
     Indication: NON-CARDIAC CHEST PAIN
     Dosage: 15 MG, PRN
     Route: 048
     Dates: start: 20180425, end: 20180506
  41. NEURONTIN [Concomitant]
     Active Substance: GABAPENTIN
     Indication: MUSCULOSKELETAL PAIN
     Route: 065
  42. DECADRON [Concomitant]
     Active Substance: DEXAMETHASONE
     Indication: ABDOMINAL PAIN
     Dosage: 8 MG, UNK
     Route: 042
     Dates: start: 20180604
  43. NORMAL SALINE [Concomitant]
     Active Substance: SODIUM CHLORIDE
     Indication: TACHYCARDIA
     Dosage: 1000 ML, UNK
     Route: 042
     Dates: start: 20180604
  44. LIDODERM [Concomitant]
     Active Substance: LIDOCAINE
     Indication: MUSCULOSKELETAL PAIN
     Dosage: UNK
     Route: 061
     Dates: start: 20180601
  45. MORPHINE [Concomitant]
     Active Substance: MORPHINE
     Indication: MUSCULOSKELETAL PAIN
     Dosage: 30 MG, UNK
     Route: 065
     Dates: start: 20180604
  46. ENULOSE [Concomitant]
     Active Substance: LACTULOSE
     Indication: CONSTIPATION
     Dosage: 20 G, TID
     Route: 048
     Dates: start: 20180507
  47. ENULOSE [Concomitant]
     Active Substance: LACTULOSE
     Indication: PRODUCT USED FOR UNKNOWN INDICATION
     Dosage: 200 G, TOTAL
     Route: 048
     Dates: start: 20180513, end: 20180513
  48. TYLENOL [Concomitant]
     Active Substance: ACETAMINOPHEN
     Indication: PYREXIA
     Dosage: 650 MG, UNK
     Route: 048
     Dates: start: 20180529
  49. ADVIL (MEFENAMIC ACID) [Concomitant]
     Active Substance: MEFENAMIC ACID
     Indication: ABDOMINAL PAIN
     Dosage: 800 MG, Q8H
     Route: 048
     Dates: start: 20171120
  50. PROGESTERONE. [Concomitant]
     Active Substance: PROGESTERONE
     Indication: OOPHORECTOMY
     Dosage: 200 MG, QD
     Route: 048
     Dates: start: 2017
  51. DOCUSATE SODIUM. [Concomitant]
     Active Substance: DOCUSATE SODIUM
     Indication: CONSTIPATION
     Dosage: 100 MG, BID
     Route: 048
     Dates: start: 20180507
  52. NORMAL SALINE [Concomitant]
     Active Substance: SODIUM CHLORIDE
     Indication: HYPOTENSION
     Dosage: 1000 ML, UNK
     Route: 042
     Dates: start: 20180529
  53. UNASYN IM/IV [Concomitant]
     Indication: ERYTHEMA
     Dosage: 1.5 G, QID
     Route: 042
     Dates: start: 20180530
  54. HYDROCORTISONE SODIUM SUCCINATE [Concomitant]
     Active Substance: HYDROCORTISONE SODIUM SUCCINATE
     Indication: INFUSION RELATED REACTION
     Dosage: UNK
     Route: 042
     Dates: start: 20180529
  55. MORPHINE [Concomitant]
     Active Substance: MORPHINE
     Indication: NON-CARDIAC CHEST PAIN
     Route: 065
  56. TYLENOL [Concomitant]
     Active Substance: ACETAMINOPHEN
     Indication: PREMEDICATION
     Dosage: 650 MG, TOTAL
     Route: 048
     Dates: start: 20180515, end: 20180515

REACTIONS (7)
  - Dyspnoea [Not Recovered/Not Resolved]
  - Back pain [Recovered/Resolved]
  - Abdominal pain [Recovered/Resolved]
  - Erythema [Recovered/Resolved]
  - Non-cardiac chest pain [Recovered/Resolved]
  - Oedema peripheral [Not Recovered/Not Resolved]
  - Musculoskeletal pain [Recovered/Resolved]

NARRATIVE: CASE EVENT DATE: 20180515
